FAERS Safety Report 17629621 (Version 1)
Quarter: 2020Q2

REPORT INFORMATION
  Report Type: Spontaneous
  Country: US (occurrence: US)
  Receive Date: 20200406
  Receipt Date: 20200406
  Transmission Date: 20200713
  Serious: No
  Sender: FDA-Public Use
  Company Number: US-SHIRE-US202012440

PATIENT
  Age: 56 Year
  Sex: Female

DRUGS (2)
  1. GAMMAGARD LIQUID [Suspect]
     Active Substance: HUMAN IMMUNOGLOBULIN G
     Indication: CHRONIC INFLAMMATORY DEMYELINATING POLYRADICULONEUROPATHY
     Dosage: 90 GRAM, EVERY 3 WK
     Route: 042
     Dates: start: 201906, end: 201909
  2. GAMMAGARD LIQUID [Suspect]
     Active Substance: HUMAN IMMUNOGLOBULIN G
     Dosage: 70 GRAM, EVERY 3 WK
     Route: 042
     Dates: start: 202001

REACTIONS (3)
  - Drug ineffective [Unknown]
  - Malaise [Unknown]
  - Asthenia [Unknown]
